FAERS Safety Report 7406212-7 (Version None)
Quarter: 2011Q2

REPORT INFORMATION
  Report Type: 
  Country: None (occurrence: None)
  Receive Date: 20110405
  Receipt Date: 20110405
  Transmission Date: 20111010
  Serious: Yes (Life-Threatening)
  Sender: FDA-Public Use
  Company Number: None

PATIENT
  Age: 72 Year
  Sex: Male
  Weight: 112.4921 kg

DRUGS (1)
  1. DULERA TABLET [Suspect]
     Indication: EMPHYSEMA
     Dosage: 2 PUFFS TWICE A DAY INHAL
     Route: 055
     Dates: start: 20110319, end: 20110321

REACTIONS (2)
  - HEADACHE [None]
  - FEELING ABNORMAL [None]
